FAERS Safety Report 6626244-6 (Version None)
Quarter: 2010Q1

REPORT INFORMATION
  Report Type: 
  Country: None (occurrence: None)
  Receive Date: 20100309
  Receipt Date: 20100309
  Transmission Date: 20100710
  Serious: No
  Sender: FDA-Public Use
  Company Number: None

PATIENT

DRUGS (1)
  1. RISPERIDONE 25 MG [Suspect]

REACTIONS (6)
  - ABNORMAL SENSATION IN EYE [None]
  - ASTHENIA [None]
  - BONE PAIN [None]
  - HAEMOGLOBIN DECREASED [None]
  - PAIN IN EXTREMITY [None]
  - VISUAL IMPAIRMENT [None]
